FAERS Safety Report 17311315 (Version 2)
Quarter: 2020Q4

REPORT INFORMATION
  Report Type: Spontaneous
  Country: BR (occurrence: BR)
  Receive Date: 20200123
  Receipt Date: 20201110
  Transmission Date: 20210113
  Serious: Yes (Other)
  Sender: FDA-Public Use
  Company Number: BR-BAUSCH-BL-2020-001938

PATIENT
  Age: 57 Year
  Sex: Female
  Weight: 65 kg

DRUGS (2)
  1. CITONEURIN [Concomitant]
     Active Substance: CYANOCOBALAMIN\PYRIDOXINE HYDROCHLORIDE\THIAMINE
     Indication: SUPPLEMENTATION THERAPY
     Dosage: 1 TABLET A DAY
     Dates: start: 20191225, end: 20200103
  2. EFURIX [Suspect]
     Active Substance: FLUOROURACIL
     Indication: PRECANCEROUS CELLS PRESENT
     Dosage: 2 APPLICATIONS A DAY
     Route: 061
     Dates: start: 20191225, end: 20200103

REACTIONS (2)
  - Facial paralysis [Not Recovered/Not Resolved]
  - Vulvovaginal injury [Not Recovered/Not Resolved]

NARRATIVE: CASE EVENT DATE: 20200103
